FAERS Safety Report 9883653 (Version 1)
Quarter: 2014Q1

REPORT INFORMATION
  Report Type: Report from Study
  Country: US (occurrence: US)
  Receive Date: 20140210
  Receipt Date: 20140210
  Transmission Date: 20141002
  Serious: Yes (Other)
  Sender: FDA-Public Use
  Company Number: US-ROCHE-1326880

PATIENT
  Sex: Male

DRUGS (12)
  1. AVASTIN [Suspect]
     Indication: NON-SMALL CELL LUNG CANCER
     Route: 065
     Dates: start: 20110602
  2. AVASTIN [Suspect]
     Indication: DISEASE PROGRESSION
  3. NAPROXEN [Suspect]
     Indication: PRODUCT USED FOR UNKNOWN INDICATION
     Route: 048
  4. TAXOTERE [Concomitant]
     Indication: NON-SMALL CELL LUNG CANCER
  5. ALENDRONATE [Concomitant]
     Route: 065
  6. COMPAZINE [Concomitant]
     Route: 065
  7. GABAPENTIN [Concomitant]
     Route: 065
  8. ZOFRAN [Concomitant]
     Route: 048
  9. ZOLOFT [Concomitant]
     Route: 048
  10. FENTANYL [Concomitant]
     Dosage: 100 MCG/HOUR
     Route: 062
  11. FENTANYL [Concomitant]
     Dosage: 50 MCG/HOUR
     Route: 062
  12. OXYCODONE [Concomitant]
     Route: 048

REACTIONS (11)
  - Osteonecrosis [Unknown]
  - Disease progression [Recovered/Resolved]
  - Chest pain [Unknown]
  - Myalgia [Unknown]
  - Bone pain [Unknown]
  - Musculoskeletal pain [Unknown]
  - Arthralgia [Unknown]
  - Fatigue [Unknown]
  - Asthenia [Unknown]
  - Chills [Unknown]
  - Cancer pain [Recovered/Resolved]
